FAERS Safety Report 5960140-2 (Version None)
Quarter: 2008Q4

REPORT INFORMATION
  Report Type: 
  Country: None (occurrence: None)
  Receive Date: 20081118
  Receipt Date: 20081118
  Transmission Date: 20090506
  Serious: Yes (Life-Threatening, Other)
  Sender: FDA-Public Use
  Company Number: None

PATIENT
  Age: 16 Year
  Sex: Male
  Weight: 58.9676 kg

DRUGS (2)
  1. LAMOTRIGINE 150 MG TEVA BRAND [Suspect]
     Indication: EPILEPSY
     Dosage: 150 MG 2 TIMES DAY PO
     Route: 048
     Dates: start: 20080906, end: 20081023
  2. LAMOTRIGINE 200 MG TEVA BRAND [Suspect]
     Indication: EPILEPSY
     Dosage: 200 MG 2 TIMES DAY PO
     Route: 048
     Dates: start: 20081023, end: 20081110

REACTIONS (7)
  - ACTIVITIES OF DAILY LIVING IMPAIRED [None]
  - CONVULSION [None]
  - ECONOMIC PROBLEM [None]
  - EDUCATIONAL PROBLEM [None]
  - MOOD SWINGS [None]
  - PRODUCT QUALITY ISSUE [None]
  - THERAPEUTIC RESPONSE UNEXPECTED WITH DRUG SUBSTITUTION [None]
